FAERS Safety Report 10409915 (Version 2)
Quarter: 2014Q3

REPORT INFORMATION
  Report Type: Spontaneous
  Country: GB (occurrence: None)
  Receive Date: 20140703
  Receipt Date: 20140721
  Transmission Date: 20150326
  Serious: Yes (Hospitalization)
  Sender: FDA-Public Use
  Company Number: AUR-APL-2014-06149

PATIENT
  Age: 68 Year
  Sex: Male
  Weight: 85 kg

DRUGS (13)
  1. NICORANDIL (NICORANDIL) [Concomitant]
     Active Substance: NICORANDIL
  2. RAMIPRIL (RAMIPRIL) [Concomitant]
     Active Substance: RAMIPRIL
  3. COLCHICINE (COLCHICINE) [Concomitant]
     Active Substance: COLCHICINE
  4. FUROSEMIDE (FUROSEMIDE) [Concomitant]
     Active Substance: FUROSEMIDE
  5. E45 (PARAFFIN, LIQUID, WHITE SOFT PARAFFIN, WOOL FAT) [Concomitant]
  6. ISOSORBIDE MONONITRATE (ISOSORBIDE MONONITRATE) [Concomitant]
     Active Substance: ISOSORBIDE MONONITRATE
  7. METFORMIN [Concomitant]
     Active Substance: METFORMIN HYDROCHLORIDE
  8. FUSIDIC ACID (FUSIDIC ACID) [Concomitant]
  9. DIHYDROCODEINE (DIHYDROCODEINE) [Concomitant]
     Active Substance: DIHYDROCODEINE
  10. TEMAZEPAM (TEMAZEPAM) [Concomitant]
     Active Substance: TEMAZEPAM
  11. CLARITHROMYCIN (CLARITHROMYCIN) UNKNOWN [Suspect]
     Active Substance: CLARITHROMYCIN
     Indication: PRODUCT USED FOR UNKNOWN INDICATION
     Dates: start: 20140429, end: 20140506
  12. OXYBUTYNIN (OXYBUTYNIN) [Concomitant]
     Active Substance: OXYBUTYNIN
  13. WARFARIN SODIUM (WARFARIN SODIUM) [Concomitant]
     Active Substance: WARFARIN SODIUM

REACTIONS (2)
  - Muscular weakness [None]
  - Myositis [None]

NARRATIVE: CASE EVENT DATE: 20140516
